FAERS Safety Report 10895321 (Version 1)
Quarter: 2015Q1

REPORT INFORMATION
  Report Type: Spontaneous
  Country: US (occurrence: US)
  Receive Date: 20150306
  Receipt Date: 20150306
  Transmission Date: 20150721
  Serious: No
  Sender: FDA-Public Use
  Company Number: US-AMGEN-USASP2014038395

PATIENT
  Age: 49 Year
  Sex: Male
  Weight: 72 kg

DRUGS (7)
  1. CALCIUM CITRATE [Concomitant]
     Active Substance: CALCIUM CITRATE
     Dosage: 1 TAB, QD
     Route: 048
     Dates: start: 20101112
  2. RENVELA [Concomitant]
     Active Substance: SEVELAMER CARBONATE
     Dosage: 800 MG, TID
     Dates: start: 20121130
  3. SENSIPAR [Suspect]
     Active Substance: CINACALCET HYDROCHLORIDE
     Indication: HYPERPARATHYROIDISM SECONDARY
     Dosage: 60 MG, QD
     Route: 048
     Dates: start: 20140212
  4. LOSARTAN [Concomitant]
     Active Substance: LOSARTAN
     Dosage: 25 MG, BID
     Route: 048
     Dates: start: 20140411
  5. DOXAZOSIN [Concomitant]
     Active Substance: DOXAZOSIN\DOXAZOSIN MESYLATE
     Dosage: 1 MG, QD
     Route: 048
     Dates: start: 20140411
  6. AMLODIPINE [Concomitant]
     Active Substance: AMLODIPINE BESYLATE
     Dosage: 5 MG (2 TAB) UNK
     Route: 048
     Dates: start: 20140411
  7. CALCIUM ACETATE. [Concomitant]
     Active Substance: CALCIUM ACETATE
     Dosage: 67 MG( 1 TAB), TID
     Route: 048

REACTIONS (6)
  - Blood parathyroid hormone increased [Unknown]
  - Blood albumin decreased [Unknown]
  - Abdominal discomfort [Unknown]
  - Nausea [Not Recovered/Not Resolved]
  - Blood calcium increased [Unknown]
  - Weight decreased [Unknown]

NARRATIVE: CASE EVENT DATE: 20140221
